FAERS Safety Report 9473490 (Version 2)
Quarter: 2014Q3

REPORT INFORMATION
  Report Type: Spontaneous
  Country: US (occurrence: US)
  Receive Date: 20130823
  Receipt Date: 20140808
  Transmission Date: 20150326
  Serious: Yes (Other)
  Sender: FDA-Public Use
  Company Number: US-BRISTOL-MYERS SQUIBB COMPANY-19032309

PATIENT
  Age: 30 Year
  Sex: Female

DRUGS (1)
  1. SPRYCEL [Suspect]
     Active Substance: DASATINIB
     Dosage: SPRYCEL 20MG(TAKING 80 MG)TABS:BATCH-2L6026C:EXP-NV15.?100MG:BATCH-2L6054B:EXPZ-NV15?TABLET
     Route: 048
     Dates: start: 20121231, end: 201305

REACTIONS (1)
  - Malignant neoplasm progression [Unknown]
